FAERS Safety Report 4845789-2 (Version None)
Quarter: 2005Q4

REPORT INFORMATION
  Report Type: 
  Country: None (occurrence: None)
  Receive Date: 20051202
  Receipt Date: 20051202
  Transmission Date: 20060501
  Serious: Yes (Death)
  Sender: FDA-Public Use
  Company Number: None

PATIENT
  Age: 16 Year
  Sex: Male
  Weight: 54.4316 kg

DRUGS (4)
  1. ZOLOFT [Suspect]
     Indication: BIPOLAR DISORDER
     Dosage: 1-50 MG ONCE DAILY PO
     Route: 048
     Dates: start: 20050721, end: 20050811
  2. ZOLOFT [Suspect]
     Indication: DEPRESSION
     Dosage: 1-50 MG ONCE DAILY PO
     Route: 048
     Dates: start: 20050721, end: 20050811
  3. ZOLOFT [Suspect]
     Indication: OPPOSITIONAL DEFIANT DISORDER
     Dosage: 1-50 MG ONCE DAILY PO
     Route: 048
     Dates: start: 20050721, end: 20050811
  4. DEPAKOTE [Suspect]
     Dosage: 750 3 TIMES DAILY PO
     Route: 048
     Dates: start: 20050721, end: 20050811

REACTIONS (3)
  - AGGRESSION [None]
  - COMPLETED SUICIDE [None]
  - INJURY ASPHYXIATION [None]
